FAERS Safety Report 9404062 (Version 2)
Quarter: 2015Q1

REPORT INFORMATION
  Report Type: Report from Study
  Country: DE (occurrence: DE)
  Receive Date: 20130717
  Receipt Date: 20150213
  Transmission Date: 20150721
  Serious: Yes (Hospitalization)
  Sender: FDA-Public Use
  Company Number: DE-ROCHE-1249377

PATIENT
  Age: 73 Year
  Sex: Male
  Weight: 94 kg

DRUGS (11)
  1. LISINOPRIL. [Concomitant]
     Active Substance: LISINOPRIL
     Indication: HYPERTENSION
     Route: 048
  2. BEVACIZUMAB [Suspect]
     Active Substance: BEVACIZUMAB
     Indication: COLORECTAL CANCER METASTATIC
     Route: 042
     Dates: start: 20130409
  3. EUTHYROX [Concomitant]
     Active Substance: LEVOTHYROXINE SODIUM
     Indication: HYPOTHYROIDISM
     Route: 048
  4. BEVACIZUMAB [Suspect]
     Active Substance: BEVACIZUMAB
     Dosage: CYCLE 5 RESUMED
     Route: 042
     Dates: start: 20130618
  5. FOLINIC ACID [Suspect]
     Active Substance: LEUCOVORIN
     Indication: COLORECTAL CANCER METASTATIC
     Dosage: 200MG/M2
     Route: 042
     Dates: start: 20130409
  6. FOLINIC ACID [Suspect]
     Active Substance: LEUCOVORIN
     Dosage: CYCLE 5, THERAPY RESUMED
     Route: 042
     Dates: start: 20130618
  7. METFORMIN [Concomitant]
     Active Substance: METFORMIN HYDROCHLORIDE
     Indication: DIABETES MELLITUS
     Route: 048
  8. 5-FU [Suspect]
     Active Substance: FLUOROURACIL
     Indication: COLORECTAL CANCER METASTATIC
     Dosage: 1000MG/M2.
     Route: 040
     Dates: start: 20130409
  9. 5-FU [Suspect]
     Active Substance: FLUOROURACIL
     Dosage: CYCLE 5, THERAPY RESUMED
     Route: 042
     Dates: start: 20130618
  10. OXALIPLATIN. [Suspect]
     Active Substance: OXALIPLATIN
     Indication: COLORECTAL CANCER METASTATIC
     Dosage: 85MG/M2
     Route: 042
     Dates: start: 20130409
  11. OXALIPLATIN. [Suspect]
     Active Substance: OXALIPLATIN
     Dosage: CYCLE 5, THERAPY RESUMED
     Route: 042
     Dates: start: 20130618

REACTIONS (2)
  - Aphasia [Recovered/Resolved]
  - Cerebrovascular accident [Recovered/Resolved]

NARRATIVE: CASE EVENT DATE: 20130530
